FAERS Safety Report 8808869 (Version 1)
Quarter: 2012Q4

REPORT INFORMATION
  Report Type: Spontaneous
  Country: US (occurrence: None)
  Receive Date: 20120920
  Receipt Date: 20120920
  Transmission Date: 20130627
  Serious: No
  Sender: FDA-Public Use
  Company Number: None

PATIENT
  Sex: Female

DRUGS (2)
  1. VELCADE [Suspect]
     Indication: MULTIPLE MYELOMA
     Route: 042
  2. THALIDOMIDE [Suspect]

REACTIONS (7)
  - Neuropathy peripheral [None]
  - Nausea [None]
  - Vomiting [None]
  - Diarrhoea [None]
  - Heart rate decreased [None]
  - Localised infection [None]
  - Cellulitis [None]
